FAERS Safety Report 5963951-2 (Version None)
Quarter: 2008Q4

REPORT INFORMATION
  Report Type: 
  Country: None (occurrence: None)
  Receive Date: 20081120
  Receipt Date: 20081112
  Transmission Date: 20090506
  Serious: Yes (Other)
  Sender: FDA-Public Use
  Company Number: CHNY2008JP04124

PATIENT
  Sex: Male

DRUGS (2)
  1. NICOTINE [Suspect]
     Indication: SMOKING CESSATION THERAPY
     Dosage: 14 MG QD TRANSDERMAL; 7 MG QD TRANSDERMAL
     Route: 062
     Dates: start: 20081008, end: 20081105
  2. NICOTINE [Suspect]
     Indication: SMOKING CESSATION THERAPY
     Dosage: 14 MG QD TRANSDERMAL; 7 MG QD TRANSDERMAL
     Route: 062
     Dates: start: 20081106

REACTIONS (1)
  - SUICIDAL IDEATION [None]
